FAERS Safety Report 8879724 (Version 1)
Quarter: 2012Q4

REPORT INFORMATION
  Report Type: 
  Country: CA (occurrence: CA)
  Receive Date: 20121101
  Receipt Date: 20121101
  Transmission Date: 20130627
  Serious: Yes (Other)
  Sender: FDA-Public Use
  Company Number: PHHO2005CA05441

PATIENT
  Sex: Female

DRUGS (3)
  1. SANDOSTATIN LAR (PATIENT BASIS) [Suspect]
     Indication: CARCINOID TUMOUR
     Dosage: 20 mg, QMO
     Dates: start: 20050307
  2. SANDOSTATIN LAR (PATIENT BASIS) [Suspect]
     Dosage: 30 mg, QMO
     Route: 030
  3. LOSEC [Concomitant]

REACTIONS (8)
  - Hepatic lesion [Unknown]
  - Hypertension [Unknown]
  - Arthralgia [Unknown]
  - Pain in extremity [Unknown]
  - Neck pain [Unknown]
  - Diarrhoea [Unknown]
  - Nausea [Unknown]
  - Headache [Unknown]
